FAERS Safety Report 9507609 (Version 1)
Quarter: 2013Q3

REPORT INFORMATION
  Report Type: Spontaneous
  Country: US (occurrence: None)
  Receive Date: 20130906
  Receipt Date: 20130906
  Transmission Date: 20140515
  Serious: Yes (Life-Threatening, Disabling, Other)
  Sender: FDA-Public Use
  Company Number: None

PATIENT
  Age: 26 Year
  Sex: Female
  Weight: 128.37 kg

DRUGS (1)
  1. MIRENA IUD [Suspect]

REACTIONS (39)
  - Rash [None]
  - Urticaria [None]
  - Urticaria [None]
  - Haemorrhage [None]
  - Alopecia [None]
  - Fluid retention [None]
  - Pain [None]
  - Skin discolouration [None]
  - Hypoaesthesia [None]
  - Hypoaesthesia [None]
  - Pain in extremity [None]
  - Raynaud^s phenomenon [None]
  - Dyspepsia [None]
  - Dyspnoea [None]
  - Vomiting [None]
  - Pharyngeal disorder [None]
  - Tooth disorder [None]
  - Abscess [None]
  - Acne [None]
  - Scar [None]
  - Skin disorder [None]
  - Headache [None]
  - Migraine [None]
  - Toothache [None]
  - Bedridden [None]
  - Photophobia [None]
  - Nail disorder [None]
  - Abdominal pain upper [None]
  - Dyspepsia [None]
  - Breath odour [None]
  - Weight increased [None]
  - Panic attack [None]
  - Depression [None]
  - Nervousness [None]
  - Tremor [None]
  - Tremor [None]
  - Fatigue [None]
  - Arthralgia [None]
  - Arthralgia [None]
